FAERS Safety Report 9822445 (Version 3)
Quarter: 2014Q1

REPORT INFORMATION
  Report Type: Spontaneous
  Country: US (occurrence: US)
  Receive Date: 20140116
  Receipt Date: 20140210
  Transmission Date: 20141002
  Serious: No
  Sender: FDA-Public Use
  Company Number: US-009507513-1401USA006552

PATIENT
  Age: 33 Year
  Sex: Female

DRUGS (1)
  1. ASMANEX TWISTHALER [Suspect]
     Indication: DYSPNOEA
     Dosage: ONE PUFF, QD
     Route: 055
     Dates: start: 201312

REACTIONS (3)
  - Dyspnoea [Recovering/Resolving]
  - Product quality issue [Unknown]
  - Device malfunction [Unknown]
